FAERS Safety Report 6132856-9 (Version None)
Quarter: 2009Q1

REPORT INFORMATION
  Report Type: 
  Country: None (occurrence: None)
  Receive Date: 20090324
  Receipt Date: 20090324
  Transmission Date: 20090719
  Serious: No
  Sender: FDA-Public Use
  Company Number: None

PATIENT
  Age: 89 Year
  Sex: Female

DRUGS (1)
  1. NITROFURANTOIN [Suspect]
     Indication: INFECTION
     Dosage: 1 CAPSULE ONCE DAILY PO
     Route: 048
     Dates: start: 20090109, end: 20090112

REACTIONS (1)
  - HYPERSENSITIVITY [None]
